FAERS Safety Report 11215243 (Version 2)
Quarter: 2015Q3

REPORT INFORMATION
  Report Type: Spontaneous
  Country: FR (occurrence: None)
  Receive Date: 20150622
  Receipt Date: 20150709
  Transmission Date: 20151125
  Serious: Yes (Hospitalization, Other)
  Sender: FDA-Public Use
  Company Number: ADR-2015-01155

PATIENT
  Age: 69 Year
  Sex: Female

DRUGS (11)
  1. DEBRIDAT (TRIMEBUTINE MALEATE) [Concomitant]
  2. LOVENOX [Concomitant]
     Active Substance: ENOXAPARIN SODIUM
  3. TAHOR [Concomitant]
     Active Substance: ATORVASTATIN CALCIUM
  4. UVEDOSE (COLECALCIFEROL) (100000 IU (INTERNATIONL UNIT, ORAL SOLUTION) (COLECALCIFEROL)) [Concomitant]
     Active Substance: CHOLECALCIFEROL
  5. BACLOFEN INTRATECAL [Suspect]
     Active Substance: BACLOFEN
     Indication: PARALYSIS
     Dates: start: 20140326
  6. INEXIUM (ESOMEPRAZOLE MAGNESIUM) [Concomitant]
     Active Substance: ESOMEPRAZOLE MAGNESIUM
  7. MECIR (TAMSULOSIN HYDROCHLORIDE) [Concomitant]
  8. AMLOR (AMLODIPINE BESILATE) [Concomitant]
     Active Substance: AMLODIPINE BESYLATE
  9. LYRICA [Concomitant]
     Active Substance: PREGABALIN
  10. ALDACTONE [Concomitant]
     Active Substance: SPIRONOLACTONE
  11. CIFLOX (CIPROFLOXACIN) [Concomitant]

REACTIONS (10)
  - Apnoea [None]
  - Hypotension [None]
  - Malaise [None]
  - Hypotonia [None]
  - Bradypnoea [None]
  - Loss of consciousness [None]
  - Vomiting [None]
  - Somnolence [None]
  - Coma scale abnormal [None]
  - Nausea [None]

NARRATIVE: CASE EVENT DATE: 20140328
